FAERS Safety Report 10975094 (Version 1)
Quarter: 2015Q2

REPORT INFORMATION
  Report Type: Report from Study
  Country: US (occurrence: US)
  Receive Date: 20150401
  Receipt Date: 20150401
  Transmission Date: 20150821
  Serious: Yes (Hospitalization, Other)
  Sender: FDA-Public Use
  Company Number: US-GILEAD-2015-0145908

PATIENT
  Age: 12 Year
  Sex: Female

DRUGS (9)
  1. DIGOXIN. [Concomitant]
     Active Substance: DIGOXIN
  2. AMBRISENTAN [Suspect]
     Active Substance: AMBRISENTAN
     Indication: PULMONARY HYPERTENSION
     Dosage: 5 MG, QD
     Route: 065
     Dates: start: 20131123
  3. FERROUS SULFATE [Concomitant]
     Active Substance: FERROUS SULFATE\FERROUS SULFATE, DRIED
  4. LASIX [Concomitant]
     Active Substance: FUROSEMIDE
  5. PREVACID [Concomitant]
     Active Substance: LANSOPRAZOLE
  6. WARFARIN [Concomitant]
     Active Substance: WARFARIN
  7. ADCIRCA [Suspect]
     Active Substance: TADALAFIL
     Indication: PRODUCT USED FOR UNKNOWN INDICATION
     Route: 065
  8. REMODULIN [Suspect]
     Active Substance: TREPROSTINIL
     Indication: PRODUCT USED FOR UNKNOWN INDICATION
     Route: 065
  9. COLACE [Concomitant]
     Active Substance: DOCUSATE SODIUM

REACTIONS (6)
  - Chest pain [Not Recovered/Not Resolved]
  - Palpitations [Not Recovered/Not Resolved]
  - Dyspnoea [Not Recovered/Not Resolved]
  - Cardiac failure [Unknown]
  - Tachycardia [Unknown]
  - Off label use [Unknown]

NARRATIVE: CASE EVENT DATE: 20150321
